FAERS Safety Report 14817197 (Version 4)
Quarter: 2018Q2

REPORT INFORMATION
  Report Type: Spontaneous
  Country: US (occurrence: US)
  Receive Date: 20180426
  Receipt Date: 20180601
  Transmission Date: 20180711
  Serious: Yes (Hospitalization, Other)
  Sender: FDA-Public Use
  Company Number: US-ELI_LILLY_AND_COMPANY-US201804009758

PATIENT
  Age: 58 Year
  Sex: Female
  Weight: 87.75 kg

DRUGS (6)
  1. VITAMIN D [Concomitant]
     Active Substance: CHOLECALCIFEROL
     Indication: PRODUCT USED FOR UNKNOWN INDICATION
     Dosage: UNK, UNKNOWN
     Route: 065
  2. METHOTREXATE. [Concomitant]
     Active Substance: METHOTREXATE
     Indication: ANKYLOSING SPONDYLITIS
     Dosage: UNK, UNKNOWN
     Route: 065
  3. BUTALBITAL W/CAFFEINE/PARACETAMOL [Concomitant]
     Active Substance: ACETAMINOPHEN\BUTALBITAL\CAFFEINE
     Indication: MIGRAINE
     Dosage: UNK, UNKNOWN
     Route: 065
  4. FOLIC ACID. [Concomitant]
     Active Substance: FOLIC ACID
     Indication: PRODUCT USED FOR UNKNOWN INDICATION
     Dosage: UNK, UNKNOWN
     Route: 065
  5. CYMBALTA [Suspect]
     Active Substance: DULOXETINE HYDROCHLORIDE
     Indication: FIBROMYALGIA
     Dosage: UNK UNK, BID
     Route: 065
     Dates: start: 201711
  6. HUMIRA [Suspect]
     Active Substance: ADALIMUMAB
     Indication: PSORIATIC ARTHROPATHY
     Dosage: 40 MG, BID
     Route: 058
     Dates: end: 201712

REACTIONS (34)
  - Pharyngitis streptococcal [Recovered/Resolved]
  - Tonsillitis [Recovered/Resolved]
  - Chest pain [Recovered/Resolved]
  - Headache [Recovering/Resolving]
  - Heart rate increased [Recovered/Resolved]
  - Fatigue [Unknown]
  - Arthralgia [Recovered/Resolved]
  - Rhinovirus infection [Recovered/Resolved]
  - Fluid intake reduced [Recovered/Resolved]
  - Sepsis [Recovered/Resolved]
  - Pain [Unknown]
  - Vomiting [Recovered/Resolved]
  - Nausea [Recovered/Resolved]
  - Pain in extremity [Recovering/Resolving]
  - Drug withdrawal syndrome [Unknown]
  - Cataract [Unknown]
  - Dehydration [Not Recovered/Not Resolved]
  - Neck pain [Recovering/Resolving]
  - Blood ketone body increased [Recovered/Resolved]
  - Rotavirus infection [Recovered/Resolved]
  - Fibromyalgia [Not Recovered/Not Resolved]
  - Adenovirus infection [Recovered/Resolved]
  - Asthenia [Not Recovered/Not Resolved]
  - Drug withdrawal headache [Recovering/Resolving]
  - Adenovirus infection [Recovered/Resolved]
  - Viral infection [Recovered/Resolved]
  - Blood cholesterol decreased [Unknown]
  - Irritability [Recovering/Resolving]
  - Dizziness [Recovered/Resolved]
  - Myocardial infarction [Recovered/Resolved]
  - Arthralgia [Unknown]
  - Hypophagia [Recovered/Resolved]
  - Gastric ulcer [Not Recovered/Not Resolved]
  - Drug dose omission [Unknown]

NARRATIVE: CASE EVENT DATE: 2016
